FAERS Safety Report 26079150 (Version 1)
Quarter: 2025Q4

REPORT INFORMATION
  Report Type: Spontaneous
  Country: US (occurrence: US)
  Receive Date: 20251123
  Receipt Date: 20251123
  Transmission Date: 20260118
  Serious: No
  Sender: GALPHARM INTERNATIONAL
  Company Number: US-PERRIGO-25US006633

PATIENT
  Age: 28 Year
  Sex: Female
  Weight: 145.13 kg

DRUGS (4)
  1. OPILL [Suspect]
     Active Substance: NORGESTREL
     Indication: Prophylaxis
     Dosage: 0.075 MG, QD
     Route: 048
     Dates: start: 20250515
  2. OPILL [Suspect]
     Active Substance: NORGESTREL
     Indication: Menstrual cycle management
  3. OPILL [Suspect]
     Active Substance: NORGESTREL
     Indication: Contraception
  4. TAKE ACTION [Concomitant]
     Active Substance: LEVONORGESTREL
     Indication: Post coital contraception
     Dosage: UNKNOWN, UNKNOWN
     Route: 048
     Dates: start: 20250519, end: 20250519

REACTIONS (5)
  - Breast tenderness [Recovering/Resolving]
  - Nausea [Not Recovered/Not Resolved]
  - Abdominal distension [Not Recovered/Not Resolved]
  - Menstruation delayed [Unknown]
  - Product use in unapproved indication [Not Recovered/Not Resolved]

NARRATIVE: CASE EVENT DATE: 20250515
